FAERS Safety Report 4803480-2 (Version None)
Quarter: 2005Q4

REPORT INFORMATION
  Report Type: 
  Country: None (occurrence: None)
  Receive Date: 20051019
  Receipt Date: 20051006
  Transmission Date: 20060501
  Serious: Yes (Other)
  Sender: FDA-Public Use
  Company Number: 2005AC01612

PATIENT
  Age: 66 Year
  Sex: Female
  Weight: 65 kg

DRUGS (5)
  1. SEROQUEL [Suspect]
     Indication: DEPRESSION
     Route: 048
     Dates: start: 20050811, end: 20050829
  2. SEROQUEL [Interacting]
     Indication: PSYCHOTIC DISORDER
     Route: 048
     Dates: start: 20050811, end: 20050829
  3. LITHIUM [Interacting]
     Indication: DEPRESSION
     Route: 048
     Dates: start: 20050822, end: 20050829
  4. TRAZOLAN [Interacting]
     Indication: SLEEP DISORDER
     Dates: start: 20050805, end: 20050829
  5. NOTRILEN [Interacting]
     Indication: DEPRESSION
     Route: 048

REACTIONS (3)
  - DRUG INTERACTION [None]
  - NEUROLEPTIC MALIGNANT SYNDROME [None]
  - SEROTONIN SYNDROME [None]
